FAERS Safety Report 5730268-0 (Version None)
Quarter: 2008Q2

REPORT INFORMATION
  Report Type: 
  Country: None (occurrence: None)
  Receive Date: 20080505
  Receipt Date: 20080505
  Transmission Date: 20081010
  Serious: No
  Sender: FDA-Public Use
  Company Number: None

PATIENT
  Age: 44 Year
  Sex: Male
  Weight: 90.7194 kg

DRUGS (3)
  1. DIGITEK 0.25MG TAB MYL B08 [Suspect]
     Indication: ARRHYTHMIA
     Dosage: 0.25MG DAILY PO
     Route: 048
     Dates: start: 20060205, end: 20080502
  2. DIGITEK 0.25MG TAB MYL B08 [Suspect]
     Indication: CARDIAC DISORDER
     Dosage: 0.25MG DAILY PO
     Route: 048
     Dates: start: 20060205, end: 20080502
  3. DIGITEK 0.25MG TAB MYL B08 [Suspect]
     Indication: CARDIAC FAILURE CONGESTIVE
     Dosage: 0.25MG DAILY PO
     Route: 048
     Dates: start: 20060205, end: 20080502

REACTIONS (8)
  - ASTHENIA [None]
  - BEDRIDDEN [None]
  - DIZZINESS [None]
  - DYSPNOEA [None]
  - FALL [None]
  - HYPOTENSION [None]
  - NAUSEA [None]
  - VOMITING [None]
